FAERS Safety Report 14627337 (Version 3)
Quarter: 2018Q2

REPORT INFORMATION
  Report Type: Spontaneous
  Country: CZ (occurrence: CZ)
  Receive Date: 20180312
  Receipt Date: 20180524
  Transmission Date: 20180711
  Serious: Yes (Other)
  Sender: FDA-Public Use
  Company Number: CZ-MYLANLABS-2018M1014711

PATIENT
  Age: 89 Year
  Sex: Female
  Weight: 44 kg

DRUGS (12)
  1. AIRFLUSAN FORSPIRO [Concomitant]
     Active Substance: FLUTICASONE PROPIONATE\SALMETEROL XINAFOATE
     Indication: PRODUCT USED FOR UNKNOWN INDICATION
     Dosage: 1-0-1 50/250
  2. FURON                              /00032601/ [Suspect]
     Active Substance: FUROSEMIDE
     Indication: PRODUCT USED FOR UNKNOWN INDICATION
     Dosage: 40 MG, QD
     Route: 065
  3. WARFARIN [Concomitant]
     Active Substance: WARFARIN
     Indication: PRODUCT USED FOR UNKNOWN INDICATION
     Dosage: 3 MG, UNK
  4. MILURIT [Concomitant]
     Active Substance: ALLOPURINOL
     Indication: PRODUCT USED FOR UNKNOWN INDICATION
     Dosage: 1-0-0
  5. SECATOXIN [Suspect]
     Active Substance: ERGOLOID MESYLATES
     Indication: PRODUCT USED FOR UNKNOWN INDICATION
     Dosage: GTT; 20-20-20
     Route: 065
  6. VEROSPIRON [Suspect]
     Active Substance: SPIRONOLACTONE
     Indication: PRODUCT USED FOR UNKNOWN INDICATION
     Dosage: 25 MG, UNK
     Route: 065
  7. DITHIADEN [Concomitant]
     Active Substance: BISULEPIN
     Indication: PRODUCT USED FOR UNKNOWN INDICATION
     Dosage: 0-0-1
     Route: 065
  8. DIGOXIN. [Suspect]
     Active Substance: DIGOXIN
     Indication: PRODUCT USED FOR UNKNOWN INDICATION
     Dosage: 0.13 ?G, QD
     Route: 048
  9. PENTOMER [Suspect]
     Active Substance: PENTOXIFYLLINE
     Indication: PRODUCT USED FOR UNKNOWN INDICATION
     Route: 065
  10. CORDARONE [Suspect]
     Active Substance: AMIODARONE HYDROCHLORIDE
     Indication: PRODUCT USED FOR UNKNOWN INDICATION
     Dosage: 200 MG, QD
  11. DILATREND [Interacting]
     Active Substance: CARVEDILOL
     Indication: PRODUCT USED FOR UNKNOWN INDICATION
     Dosage: 625 MG, QD
     Route: 048
  12. ALENDRONATE SANDOZ [Concomitant]
     Active Substance: ALENDRONATE SODIUM
     Indication: OSTEOPOROSIS
     Dosage: UNK UNK, QW

REACTIONS (6)
  - Bradycardia [Unknown]
  - Hypotension [Unknown]
  - Cardioactive drug level increased [Unknown]
  - Hyperkalaemia [Unknown]
  - Fall [Unknown]
  - Labelled drug-drug interaction medication error [Unknown]
